FAERS Safety Report 9496201 (Version 1)
Quarter: 2013Q3

REPORT INFORMATION
  Report Type: Spontaneous
  Country: JP (occurrence: None)
  Receive Date: 20130829
  Receipt Date: 20130829
  Transmission Date: 20140515
  Serious: Yes (Other)
  Sender: FDA-Public Use
  Company Number: 2013PL000134

PATIENT
  Age: 49 Year
  Sex: Female

DRUGS (3)
  1. PROLEUKIN [Suspect]
     Indication: LYMPHOPENIA
     Route: 058
     Dates: start: 200502
  2. GANCICLOVIR [Concomitant]
  3. VALGANCICLOVIR [Concomitant]

REACTIONS (7)
  - Hyperpyrexia [None]
  - Visual field defect [None]
  - Colour blindness [None]
  - Eyelid oedema [None]
  - Mycobacterium avium complex infection [None]
  - Bone marrow failure [None]
  - Blindness unilateral [None]
